FAERS Safety Report 4727453-3 (Version None)
Quarter: 2005Q3

REPORT INFORMATION
  Report Type: 
  Country: None (occurrence: None)
  Receive Date: 20050727
  Receipt Date: 20050727
  Transmission Date: 20060218
  Serious: Yes (Hospitalization)
  Sender: FDA-Public Use
  Company Number: None

PATIENT
  Age: 79 Year
  Sex: Male
  Weight: 92 kg

DRUGS (10)
  1. LISINOPRIL AND HYDROCHLOROTHIAZIDE [Suspect]
     Indication: HYPERTENSION
     Dosage: ONE PO DAILY CHRONIC
     Route: 048
  2. TRIAMTERENE AND HYDROCHLOROTHIAZIDE [Suspect]
     Indication: HYPERTENSION
     Dosage: ONE PO DAILY CHRONIC
     Route: 048
  3. TOPROL-XL [Concomitant]
  4. PRAVACHOL [Concomitant]
  5. ALLEGRA [Concomitant]
  6. CELEBREX [Concomitant]
  7. ASPIRIN [Concomitant]
  8. ROBITUSSIN [Concomitant]
  9. VIT C [Concomitant]
  10. VIT E [Concomitant]

REACTIONS (6)
  - CHEST PAIN [None]
  - DEHYDRATION [None]
  - DIZZINESS [None]
  - ORTHOSTATIC HYPOTENSION [None]
  - PNEUMONIA [None]
  - RENAL FAILURE [None]
